FAERS Safety Report 5076465-1 (Version None)
Quarter: 2006Q3

REPORT INFORMATION
  Report Type: 
  Country: None (occurrence: None)
  Receive Date: 20060725
  Receipt Date: 20060425
  Transmission Date: 20061208
  Serious: No
  Sender: FDA-Public Use
  Company Number: 200613047BWH

PATIENT
  Age: 56 Year
  Sex: Female

DRUGS (6)
  1. NEXAVAR [Suspect]
     Indication: RENAL CELL CARCINOMA STAGE UNSPECIFIED
     Dosage: 400 MG, BID, ORAL
     Route: 048
     Dates: start: 20060213
  2. PREMARIN [Concomitant]
  3. WELLBUTRIN [Concomitant]
  4. PROZAC [Concomitant]
  5. XANAX [Concomitant]
  6. LORCET-HD [Concomitant]

REACTIONS (7)
  - BLOOD LACTATE DEHYDROGENASE INCREASED [None]
  - FATIGUE [None]
  - NAUSEA [None]
  - PAIN IN EXTREMITY [None]
  - PAIN OF SKIN [None]
  - RASH GENERALISED [None]
  - VOMITING [None]
